FAERS Safety Report 24957122 (Version 1)
Quarter: 2025Q1

REPORT INFORMATION
  Report Type: Spontaneous
  Country: KR (occurrence: KR)
  Receive Date: 20250211
  Receipt Date: 20250211
  Transmission Date: 20250409
  Serious: Yes (Hospitalization, Other)
  Sender: JOHNSON AND JOHNSON
  Company Number: KR-JNJFOC-20250201943

PATIENT
  Age: 52 Year
  Sex: Female
  Weight: 48 kg

DRUGS (9)
  1. SELEXIPAG [Suspect]
     Active Substance: SELEXIPAG
     Indication: Product used for unknown indication
     Route: 048
  2. SELEXIPAG [Suspect]
     Active Substance: SELEXIPAG
     Route: 048
     Dates: start: 202002
  3. BOSENTAN [Suspect]
     Active Substance: BOSENTAN
     Indication: Product used for unknown indication
     Route: 048
     Dates: start: 2017
  4. NIFEDIPINE [Concomitant]
     Active Substance: NIFEDIPINE
     Route: 065
  5. SILDENAFIL [Concomitant]
     Active Substance: SILDENAFIL
     Route: 065
     Dates: start: 201807
  6. CELECOXIB [Concomitant]
     Active Substance: CELECOXIB
     Route: 065
  7. CELECOXIB [Concomitant]
     Active Substance: CELECOXIB
     Route: 065
  8. PREDNISOLONE [Concomitant]
     Active Substance: PREDNISOLONE
     Route: 065
  9. ASPIRIN [Concomitant]
     Active Substance: ASPIRIN
     Route: 065

REACTIONS (10)
  - Hepatocellular injury [Unknown]
  - Pneumonia [Unknown]
  - Diarrhoea [Unknown]
  - Cough [Unknown]
  - Haemoptysis [Unknown]
  - Pyrexia [Unknown]
  - Dyspnoea [Unknown]
  - Increased appetite [Unknown]
  - Influenza like illness [Unknown]
  - Right ventricular hypertrophy [Unknown]

NARRATIVE: CASE EVENT DATE: 20170101
